FAERS Safety Report 22129418 (Version 1)
Quarter: 2023Q1

REPORT INFORMATION
  Report Type: Spontaneous
  Country: QA (occurrence: QA)
  Receive Date: 20230323
  Receipt Date: 20230323
  Transmission Date: 20230418
  Serious: Yes (Life-Threatening)
  Sender: FDA-Public Use
  Company Number: QA-BoehringerIngelheim-2023-BI-226714

PATIENT
  Age: 38 Year
  Sex: Male

DRUGS (7)
  1. IPRATROPIUM BROMIDE [Suspect]
     Active Substance: IPRATROPIUM BROMIDE
     Indication: Asthma
  2. IPRATROPIUM BROMIDE [Suspect]
     Active Substance: IPRATROPIUM BROMIDE
  3. ALBUTEROL [Concomitant]
     Active Substance: ALBUTEROL
     Indication: Asthma
  4. ALBUTEROL [Concomitant]
     Active Substance: ALBUTEROL
     Dosage: ONE PUFF
  5. ALBUTEROL [Concomitant]
     Active Substance: ALBUTEROL
  6. HYDROCORTISONE [Concomitant]
     Active Substance: HYDROCORTISONE
     Indication: Asthma
     Route: 042
  7. BUDESONIDE [Concomitant]
     Active Substance: BUDESONIDE
     Indication: Asthma

REACTIONS (2)
  - Asthma [Recovering/Resolving]
  - Drug ineffective [Unknown]
